FAERS Safety Report 25768130 (Version 1)
Quarter: 2025Q3

REPORT INFORMATION
  Report Type: Spontaneous
  Country: US (occurrence: US)
  Receive Date: 20250905
  Receipt Date: 20250905
  Transmission Date: 20251020
  Serious: No
  Sender: DOMPE FARMACEUTICI
  Company Number: US-FARMAPROD-202505-1776

PATIENT
  Sex: Female

DRUGS (17)
  1. OXERVATE [Suspect]
     Active Substance: CENEGERMIN-BKBJ
     Indication: Neurotrophic keratopathy
     Route: 047
     Dates: start: 20250430
  2. MINERALS\VITAMINS [Concomitant]
     Active Substance: MINERALS\VITAMINS
  3. IRON [Concomitant]
     Active Substance: IRON
  4. PROBIOTICS NOS [Concomitant]
     Active Substance: PROBIOTICS NOS
  5. CRANBERRY PLUS VITAMIN C [Concomitant]
  6. VITAMINS [Concomitant]
     Active Substance: VITAMINS
  7. PRAVASTATIN SODIUM [Concomitant]
     Active Substance: PRAVASTATIN SODIUM
  8. POTASSIUM CHLORIDE [Concomitant]
     Active Substance: POTASSIUM CHLORIDE
  9. NITROFURANTOIN [Concomitant]
     Active Substance: NITROFURANTOIN
  10. TOBRAMYCIN [Concomitant]
     Active Substance: TOBRAMYCIN
  11. METOPROLOL SUCCINATE [Concomitant]
     Active Substance: METOPROLOL SUCCINATE
  12. LEVOTHYROXINE SODIUM [Concomitant]
     Active Substance: LEVOTHYROXINE SODIUM
  13. LISINOPRIL [Concomitant]
     Active Substance: LISINOPRIL
  14. FUROSEMIDE [Concomitant]
     Active Substance: FUROSEMIDE
  15. ELIQUIS [Concomitant]
     Active Substance: APIXABAN
  16. ALLOPURINOL [Concomitant]
     Active Substance: ALLOPURINOL
  17. AMLODIPINE BESYLATE [Concomitant]
     Active Substance: AMLODIPINE BESYLATE

REACTIONS (4)
  - Ocular hyperaemia [Unknown]
  - Photophobia [Unknown]
  - Lacrimation increased [Unknown]
  - Ocular discomfort [Unknown]
